FAERS Safety Report 6374428-7 (Version None)
Quarter: 2009Q3

REPORT INFORMATION
  Report Type: 
  Country: None (occurrence: None)
  Receive Date: 20090924
  Receipt Date: 20090910
  Transmission Date: 20100115
  Serious: Yes (Hospitalization)
  Sender: FDA-Public Use
  Company Number: JP-PFIZER INC-2009261464

PATIENT
  Age: 57 Year

DRUGS (2)
  1. AROMASIN [Suspect]
     Indication: BREAST CANCER
     Dosage: 25 MG, 1X/DAY
     Route: 048
  2. LETROZOLE [Suspect]
     Indication: BREAST CANCER
     Dosage: UNK

REACTIONS (1)
  - HAEMOLYTIC ANAEMIA [None]
